FAERS Safety Report 9902339 (Version 3)
Quarter: 2015Q3

REPORT INFORMATION
  Report Type: Spontaneous
  Country: US (occurrence: US)
  Receive Date: 20140217
  Receipt Date: 20150810
  Transmission Date: 20151125
  Serious: No
  Sender: FDA-Public Use
  Company Number: US-GILEAD-2011-0043581

PATIENT
  Age: 33 Year
  Sex: Male

DRUGS (7)
  1. LETAIRIS [Suspect]
     Active Substance: AMBRISENTAN
     Indication: UNEVALUABLE EVENT
  2. MARINOL                            /00003301/ [Concomitant]
  3. CANNABIS [Concomitant]
     Active Substance: CANNABIS SATIVA SUBSP. INDICA TOP
  4. LETAIRIS [Suspect]
     Active Substance: AMBRISENTAN
     Indication: PULMONARY HYPERTENSION
     Route: 048
     Dates: start: 20110415
  5. MEGACE [Concomitant]
     Active Substance: MEGESTROL ACETATE
  6. ADCIRCA [Concomitant]
     Active Substance: TADALAFIL
  7. TYVASO [Concomitant]
     Active Substance: TREPROSTINIL

REACTIONS (2)
  - Decreased appetite [Not Recovered/Not Resolved]
  - Weight decreased [Not Recovered/Not Resolved]
